FAERS Safety Report 4575665-4 (Version None)
Quarter: 2005Q1

REPORT INFORMATION
  Report Type: 
  Country: None (occurrence: None)
  Receive Date: 20050127
  Receipt Date: 20041021
  Transmission Date: 20050727
  Serious: No
  Sender: FDA-Public Use
  Company Number: USA041081812

PATIENT
  Age: 61 Year
  Sex: Male

DRUGS (3)
  1. STRATTERA [Suspect]
     Dosage: 40 MG/2 DAY
     Dates: start: 20040930
  2. EFFEXOR XR [Concomitant]
  3. MULTI-VITAMINS [Concomitant]

REACTIONS (3)
  - DIZZINESS [None]
  - FEELING ABNORMAL [None]
  - HOT FLUSH [None]
